FAERS Safety Report 22821049 (Version 5)
Quarter: 2024Q3

REPORT INFORMATION
  Report Type: Spontaneous
  Country: US (occurrence: US)
  Receive Date: 20230814
  Receipt Date: 20240910
  Transmission Date: 20241017
  Serious: Yes (Hospitalization)
  Sender: PFIZER
  Company Number: US-PFIZER INC-202300274664

PATIENT
  Age: 13 Year
  Sex: Female

DRUGS (3)
  1. OXBRYTA [Suspect]
     Active Substance: VOXELOTOR
     Dosage: 1500 MG, 1X/DAY
     Route: 048
  2. OXBRYTA [Suspect]
     Active Substance: VOXELOTOR
     Dosage: 500 MG, 3 TABLETS ONCE DAILY, ORALLY
     Route: 048
     Dates: end: 2024
  3. HYDROXYUREA [Concomitant]
     Active Substance: HYDROXYUREA
     Dosage: UNK

REACTIONS (4)
  - Sickle cell anaemia with crisis [Unknown]
  - Headache [Not Recovered/Not Resolved]
  - Road traffic accident [Unknown]
  - Mouth injury [Unknown]
